FAERS Safety Report 9660409 (Version 2)
Quarter: 2013Q4

REPORT INFORMATION
  Report Type: Spontaneous
  Country: US (occurrence: US)
  Receive Date: 20131031
  Receipt Date: 20131217
  Transmission Date: 20140711
  Serious: Yes (Hospitalization, Other)
  Sender: FDA-Public Use
  Company Number: US-BAYER-2013-131986

PATIENT
  Age: 32 Year
  Sex: Female
  Weight: 56.69 kg

DRUGS (15)
  1. MIRENA [Suspect]
     Indication: CONTRACEPTION
     Dosage: 20 MCG/24HR, CONT
     Route: 015
     Dates: start: 20081016, end: 20101020
  2. LEXAPRO [Concomitant]
     Dosage: 15 MG, EVERY NIGHT
     Route: 048
  3. ABILIFY [Concomitant]
     Dosage: 125 MG, DAILY
     Route: 048
  4. LAMICTAL [Concomitant]
     Dosage: 40 MG, UNK
     Route: 048
  5. TOPAMAX [Concomitant]
     Dosage: 100 MG, UNK
     Route: 048
  6. VITAMIN D [Concomitant]
     Dosage: 50,000 UNITS [EVERY] WEEK
  7. LACOSAMIDE [Concomitant]
     Dosage: 100 MG, UNK
     Route: 048
  8. IBUPROFEN [Concomitant]
     Dosage: 800 MG, UNK
  9. ADVIL [Concomitant]
  10. CEFOXITIN [Concomitant]
  11. DOXYCYCLINE [Concomitant]
  12. DILAUDID [Concomitant]
     Indication: PAIN
  13. LEVOFLOXACIN [Concomitant]
     Indication: PAIN
  14. FLAGYL [Concomitant]
     Indication: PAIN
  15. NORCO [Concomitant]
     Indication: PAIN

REACTIONS (13)
  - Uterine perforation [None]
  - Pelvic pain [None]
  - Abdominal pain [None]
  - Injury [None]
  - Emotional distress [None]
  - Internal injury [None]
  - Genital haemorrhage [None]
  - Depression [None]
  - Anxiety [None]
  - Fear [None]
  - Tubo-ovarian abscess [None]
  - Depressed mood [None]
  - Medical device discomfort [None]
